FAERS Safety Report 6637842-8 (Version None)
Quarter: 2010Q1

REPORT INFORMATION
  Report Type: 
  Country: None (occurrence: None)
  Receive Date: 20100315
  Receipt Date: 20100315
  Transmission Date: 20100710
  Serious: Yes (Other)
  Sender: FDA-Public Use
  Company Number: None

PATIENT
  Age: 35 Year
  Sex: Male
  Weight: 97.5234 kg

DRUGS (2)
  1. SULFACETAMIDE 10% EYE DROPS 10% BAUSCH + LOMB [Suspect]
     Indication: MULTIPLE ALLERGIES
     Dosage: 1 DROP/EYE 4/DAY FOR 10 DAYS OPHTHALMIC
     Route: 047
     Dates: start: 20100302, end: 20100310
  2. SULFACETAMIDE 10% EYE DROPS 10% BAUSCH + LOMB [Suspect]
     Indication: VIRAL INFECTION
     Dosage: 1 DROP/EYE 4/DAY FOR 10 DAYS OPHTHALMIC
     Route: 047
     Dates: start: 20100302, end: 20100310

REACTIONS (1)
  - RASH [None]
